FAERS Safety Report 15146871 (Version 5)
Quarter: 2019Q2

REPORT INFORMATION
  Report Type: Report from Study
  Country: None (occurrence: US)
  Receive Date: 20180716
  Receipt Date: 20190403
  Transmission Date: 20190711
  Serious: Yes (Hospitalization, Other)
  Sender: FDA-Public Use
  Company Number: US-ABBVIE-18K-163-2333093-00

PATIENT
  Sex: Female

DRUGS (4)
  1. HUMIRA [Suspect]
     Active Substance: ADALIMUMAB
     Route: 058
     Dates: start: 2018
  2. HUMIRA [Suspect]
     Active Substance: ADALIMUMAB
     Dosage: DAY 15
     Route: 058
     Dates: start: 20180403, end: 20180403
  3. HUMIRA [Suspect]
     Active Substance: ADALIMUMAB
     Indication: CROHN^S DISEASE
     Route: 058
     Dates: start: 20180320, end: 20180320
  4. HUMIRA [Suspect]
     Active Substance: ADALIMUMAB
     Route: 058
     Dates: start: 201804, end: 2018

REACTIONS (14)
  - Frequent bowel movements [Not Recovered/Not Resolved]
  - Weight increased [Unknown]
  - Decreased appetite [Recovering/Resolving]
  - Impaired work ability [Unknown]
  - Short-bowel syndrome [Unknown]
  - Fluid retention [Unknown]
  - Post procedural diarrhoea [Not Recovered/Not Resolved]
  - Crohn^s disease [Recovered/Resolved]
  - Anticipatory anxiety [Not Recovered/Not Resolved]
  - Fistula discharge [Not Recovered/Not Resolved]
  - Loss of personal independence in daily activities [Unknown]
  - Insomnia [Unknown]
  - Abdominal distension [Not Recovered/Not Resolved]
  - Injection site pain [Unknown]

NARRATIVE: CASE EVENT DATE: 2018
